FAERS Safety Report 6105510-7 (Version None)
Quarter: 2009Q1

REPORT INFORMATION
  Report Type: 
  Country: None (occurrence: None)
  Receive Date: 20090306
  Receipt Date: 20090227
  Transmission Date: 20090719
  Serious: Yes (Hospitalization)
  Sender: FDA-Public Use
  Company Number: A0771660A

PATIENT
  Age: 61 Year
  Sex: Male
  Weight: 90.9 kg

DRUGS (7)
  1. AVANDIA [Suspect]
     Indication: DIABETES MELLITUS
     Dosage: 4MG TWICE PER DAY
     Route: 048
     Dates: start: 20020301, end: 20061201
  2. AMARYL [Concomitant]
  3. METAGLIP [Concomitant]
  4. METOPROLOL TARTRATE [Concomitant]
  5. SIMVASTATIN [Concomitant]
  6. LIPITOR [Concomitant]
  7. CRESTOR [Concomitant]

REACTIONS (3)
  - CARDIAC FAILURE CONGESTIVE [None]
  - HEART INJURY [None]
  - MYOCARDIAL INFARCTION [None]
